FAERS Safety Report 17848217 (Version 2)
Quarter: 2020Q4

REPORT INFORMATION
  Report Type: Spontaneous
  Country: US (occurrence: US)
  Receive Date: 20200601
  Receipt Date: 20201012
  Transmission Date: 20210113
  Serious: Yes (Other)
  Sender: FDA-Public Use
  Company Number: US-ELI_LILLY_AND_COMPANY-US202005011070

PATIENT
  Sex: Female
  Weight: 145 kg

DRUGS (4)
  1. TYVASO [Suspect]
     Active Substance: TREPROSTINIL
     Dosage: 18-54 UG, QID
     Route: 055
  2. TYVASO [Suspect]
     Active Substance: TREPROSTINIL
     Indication: PULMONARY ARTERIAL HYPERTENSION
     Dosage: 54 UG, QID
     Route: 055
     Dates: start: 20190816
  3. OPSUMIT [Concomitant]
     Active Substance: MACITENTAN
     Indication: PRODUCT USED FOR UNKNOWN INDICATION
     Dosage: UNK, UNKNOWN
     Route: 065
  4. CYMBALTA [Suspect]
     Active Substance: DULOXETINE HYDROCHLORIDE
     Indication: PRODUCT USED FOR UNKNOWN INDICATION
     Dosage: UNK, UNKNOWN
     Route: 065

REACTIONS (16)
  - Dry mouth [Recovered/Resolved]
  - Dry throat [Unknown]
  - Dizziness [Unknown]
  - Paraesthesia [Unknown]
  - Drug hypersensitivity [Unknown]
  - Pain [Unknown]
  - Oedema peripheral [Unknown]
  - Urticaria [Recovered/Resolved]
  - Hypoaesthesia [Unknown]
  - Tooth disorder [Unknown]
  - Cough [Unknown]
  - Blister [Recovered/Resolved]
  - Pruritus [Recovered/Resolved]
  - Arthropod bite [Unknown]
  - Malaise [Recovered/Resolved]
  - Rash [Unknown]
